FAERS Safety Report 18903369 (Version 2)
Quarter: 2021Q1

REPORT INFORMATION
  Report Type: Report from Study
  Country: DE (occurrence: DE)
  Receive Date: 20210217
  Receipt Date: 20210301
  Transmission Date: 20210420
  Serious: Yes (Death, Life-Threatening, Hospitalization, Other)
  Sender: FDA-Public Use
  Company Number: DE-GLAXOSMITHKLINE-DE2021GSK042924

PATIENT
  Age: 77 Year
  Sex: Male
  Weight: 84 kg

DRUGS (17)
  1. AMLO TAD [Concomitant]
     Dosage: 10 MG, QD
  2. MOXONIDIN HEXAL [Concomitant]
     Dosage: 0.3 MG, BID
  3. PREGABALIN. [Concomitant]
     Active Substance: PREGABALIN
     Dosage: 150 MG, BID
  4. BELOC ZOK [Concomitant]
     Active Substance: METOPROLOL SUCCINATE
     Dosage: 95 MG, QD
  5. BELANTAMAB MAFODOTIN. [Suspect]
     Active Substance: BELANTAMAB MAFODOTIN
     Indication: PLASMA CELL MYELOMA
     Dosage: UNK UNK, CYC
     Route: 042
  6. CANDESARTAN + HYDROCHLOROTHIAZIDE [Concomitant]
     Active Substance: CANDESARTAN CILEXETIL\HYDROCHLOROTHIAZIDE
     Dosage: UNK, QD
  7. IXAZOMIB [Concomitant]
     Active Substance: IXAZOMIB
  8. ACYCLOVIR. [Concomitant]
     Active Substance: ACYCLOVIR
     Dosage: 400 MG, BID
  9. BENDAMUSTINE [Concomitant]
     Active Substance: BENDAMUSTINE
  10. COTRIM FORTE [Concomitant]
     Active Substance: SULFAMETHOXAZOLE\TRIMETHOPRIM
     Dosage: 960 MG, QD
  11. FOLSAN [Concomitant]
     Active Substance: FOLIC ACID
     Dosage: 0.4 MG, QD
  12. PANTOPRAZOLE [Concomitant]
     Active Substance: PANTOPRAZOLE
     Dosage: 40 MG, QD
  13. MELPHALAN. [Concomitant]
     Active Substance: MELPHALAN
  14. REVLIMID [Concomitant]
     Active Substance: LENALIDOMIDE
  15. DEKRISTOL [Concomitant]
     Active Substance: CHOLECALCIFEROL
     Dosage: 20000 I.E
  16. EBRANTIL [Concomitant]
     Active Substance: URAPIDIL
     Dosage: 30 MG, BID
  17. NOVAMINSULFONE [Concomitant]
     Dosage: 500 MG, QID

REACTIONS (4)
  - Immunoglobulins decreased [Unknown]
  - Febrile neutropenia [Not Recovered/Not Resolved]
  - Sepsis [Fatal]
  - Pancytopenia [Unknown]

NARRATIVE: CASE EVENT DATE: 20210211
